FAERS Safety Report 17478386 (Version 1)
Quarter: 2020Q1

REPORT INFORMATION
  Report Type: Report from Study
  Country: BR (occurrence: BR)
  Receive Date: 20200228
  Receipt Date: 20200228
  Transmission Date: 20200409
  Serious: Yes (Other)
  Sender: FDA-Public Use
  Company Number: BR-JNJFOC-20191112293

PATIENT
  Sex: Male
  Weight: 114 kg

DRUGS (10)
  1. SIMVASTATIN. [Concomitant]
     Active Substance: SIMVASTATIN
  2. INSULIN                            /00646001/ [Concomitant]
     Active Substance: INSULIN NOS
  3. MICARDIS [Concomitant]
     Active Substance: TELMISARTAN
  4. ACETYLSALICYLIC ACID [Concomitant]
     Active Substance: ASPIRIN
  5. STELARA [Suspect]
     Active Substance: USTEKINUMAB
     Route: 058
     Dates: start: 20150706
  6. INDAPAMIDE. [Concomitant]
     Active Substance: INDAPAMIDE
  7. DASTENE [Concomitant]
  8. STELARA [Suspect]
     Active Substance: USTEKINUMAB
     Indication: PSORIASIS
     Route: 058
  9. JARDIANCE [Concomitant]
     Active Substance: EMPAGLIFLOZIN
  10. PIOGLITAZONE HYDROCHLORIDE. [Concomitant]
     Active Substance: PIOGLITAZONE HYDROCHLORIDE

REACTIONS (4)
  - Product dose omission [Unknown]
  - Psoriasis [Not Recovered/Not Resolved]
  - Parkinson^s disease [Recovered/Resolved]
  - Injury [Unknown]
